FAERS Safety Report 4430106-2 (Version None)
Quarter: 2004Q3

REPORT INFORMATION
  Report Type: 
  Country: None (occurrence: None)
  Receive Date: 20040820
  Receipt Date: 20040702
  Transmission Date: 20050211
  Serious: Yes (Life-Threatening)
  Sender: FDA-Public Use
  Company Number: JP-ROCHE-372695

PATIENT
  Age: 55 Year
  Sex: Male

DRUGS (7)
  1. TORSEMIDE [Suspect]
     Route: 048
     Dates: start: 20040526, end: 20040531
  2. ZANTAC [Concomitant]
  3. LASIX [Concomitant]
  4. ALDACTONE-A [Concomitant]
  5. ZYLORIC [Concomitant]
  6. AMOBAN [Concomitant]
  7. ASPIRIN [Concomitant]

REACTIONS (2)
  - ANOREXIA [None]
  - HEPATIC FUNCTION ABNORMAL [None]
